FAERS Safety Report 5634208-4 (Version None)
Quarter: 2008Q1

REPORT INFORMATION
  Report Type: 
  Country: None (occurrence: None)
  Receive Date: 20080219
  Receipt Date: 20080205
  Transmission Date: 20080703
  Serious: Yes (Death)
  Sender: FDA-Public Use
  Company Number: 18093

PATIENT
  Age: 63 Year
  Sex: Female
  Weight: 63.5 kg

DRUGS (12)
  1. CARBOPLATIN [Suspect]
     Indication: NON-SMALL CELL LUNG CANCER
     Dosage: 327 MG MONTHLY IV
     Route: 042
     Dates: start: 20071022, end: 20071022
  2. GEMCITABINE [Suspect]
     Indication: NON-SMALL CELL LUNG CANCER
     Dates: start: 20071022
  3. GEMCITABINE [Suspect]
     Indication: NON-SMALL CELL LUNG CANCER
     Dates: start: 20071029
  4. CARBACHOL [Concomitant]
  5. COSOPT /01419801/ [Concomitant]
  6. BIMATOPROST 0.03% [Concomitant]
  7. PANTOPRAZOLE [Concomitant]
  8. PERINDOPRIL [Concomitant]
  9. PROCHLORPERAZINE [Concomitant]
  10. FERROUS GLUCONATE [Concomitant]
  11. CALCIUM CARBONATE [Concomitant]
  12. VITAMIN D [Concomitant]

REACTIONS (11)
  - DEPRESSED LEVEL OF CONSCIOUSNESS [None]
  - HYPOTHERMIA [None]
  - ISCHAEMIC HEPATITIS [None]
  - LACTIC ACIDOSIS [None]
  - NAUSEA [None]
  - PERICARDIAL EFFUSION [None]
  - PNEUMONIA [None]
  - RENAL FAILURE ACUTE [None]
  - RESPIRATORY FAILURE [None]
  - SEPSIS [None]
  - SHOCK [None]
